FAERS Safety Report 11416319 (Version 2)
Quarter: 2015Q3

REPORT INFORMATION
  Report Type: Spontaneous
  Country: AU (occurrence: AU)
  Receive Date: 20150825
  Receipt Date: 20150916
  Transmission Date: 20151125
  Serious: Yes (Hospitalization, Other)
  Sender: FDA-Public Use
  Company Number: AU-PFIZER INC-2015277522

PATIENT
  Age: 20 Year
  Sex: Female

DRUGS (4)
  1. ZOLOFT [Suspect]
     Active Substance: SERTRALINE HYDROCHLORIDE
     Indication: BORDERLINE PERSONALITY DISORDER
  2. ZOLOFT [Suspect]
     Active Substance: SERTRALINE HYDROCHLORIDE
     Indication: ANXIETY
     Dosage: 200 MG, 1X/DAY
     Dates: end: 201507
  3. ZOLOFT [Suspect]
     Active Substance: SERTRALINE HYDROCHLORIDE
     Indication: PANIC DISORDER
  4. ZOLOFT [Suspect]
     Active Substance: SERTRALINE HYDROCHLORIDE
     Indication: DEPRESSION
     Dosage: 100 MG, 1X/DAY
     Dates: start: 2002

REACTIONS (11)
  - Paraesthesia [Unknown]
  - Crying [Unknown]
  - Depression [Unknown]
  - Suicide attempt [Not Recovered/Not Resolved]
  - Drug withdrawal syndrome [Unknown]
  - Headache [Unknown]
  - Panic disorder [Unknown]
  - Drug dependence [Not Recovered/Not Resolved]
  - Anxiety [Unknown]
  - Depressed mood [Unknown]
  - Pain [Unknown]

NARRATIVE: CASE EVENT DATE: 2002
